FAERS Safety Report 21778277 (Version 2)
Quarter: 2023Q1

REPORT INFORMATION
  Report Type: Spontaneous
  Country: US (occurrence: US)
  Receive Date: 20221226
  Receipt Date: 20230109
  Transmission Date: 20230417
  Serious: No
  Sender: FDA-Public Use
  Company Number: US-BIOVITRUM-2022US15300

PATIENT
  Sex: Male

DRUGS (2)
  1. SYNAGIS [Suspect]
     Active Substance: PALIVIZUMAB
     Indication: Product used for unknown indication
     Dosage: FIRST DOSE
     Dates: start: 20221109
  2. SYNAGIS [Suspect]
     Active Substance: PALIVIZUMAB
     Dosage: SECOND DOSE
     Dates: start: 20221209

REACTIONS (3)
  - Rash [Unknown]
  - Hypersensitivity [Unknown]
  - Pyrexia [Unknown]
